FAERS Safety Report 11575664 (Version 1)
Quarter: 2015Q3

REPORT INFORMATION
  Report Type: Spontaneous
  Country: US (occurrence: US)
  Receive Date: 20150916
  Receipt Date: 20150916
  Transmission Date: 20151125
  Serious: No
  Sender: FDA-Public Use
  Company Number: US-ELI_LILLY_AND_COMPANY-US200809005833

PATIENT
  Age: 76 Year
  Sex: Female

DRUGS (10)
  1. FORTEO [Suspect]
     Active Substance: TERIPARATIDE
     Indication: OSTEOPOROSIS
     Dosage: 20 UG, DAILY (1/D)
     Dates: start: 20080726, end: 20080925
  2. MAGNESIUM [Concomitant]
     Active Substance: MAGNESIUM
  3. TYLENOL [Concomitant]
     Active Substance: ACETAMINOPHEN
  4. DIOVAN [Concomitant]
     Active Substance: VALSARTAN
  5. CALTRATE + D                       /07511201/ [Concomitant]
  6. VITAMINS                           /90003601/ [Concomitant]
     Active Substance: VITAMINS
  7. ALEVE [Concomitant]
     Active Substance: NAPROXEN SODIUM
  8. FORTEO [Suspect]
     Active Substance: TERIPARATIDE
     Dates: start: 20081028
  9. FLECTOR [Concomitant]
     Active Substance: DICLOFENAC EPOLAMINE
  10. CHOLESTEROL [Concomitant]
     Active Substance: CHOLESTEROL

REACTIONS (2)
  - Pain in extremity [Not Recovered/Not Resolved]
  - Pain [Not Recovered/Not Resolved]

NARRATIVE: CASE EVENT DATE: 200808
